FAERS Safety Report 26027908 (Version 2)
Quarter: 2025Q4

REPORT INFORMATION
  Report Type: Report from Study
  Country: US (occurrence: US)
  Receive Date: 20251111
  Receipt Date: 20251217
  Transmission Date: 20260118
  Serious: Yes (Other)
  Sender: ACADIA PHARMACEUTICALS
  Company Number: US-ACADIA PHARMACEUTICALS INC.-ACA-2025-PIM-011974

PATIENT
  Sex: Male

DRUGS (2)
  1. NUPLAZID [Suspect]
     Active Substance: PIMAVANSERIN TARTRATE
     Indication: Parkinson^s disease
     Dosage: 10 MILLIGRAM, QD
     Route: 048
     Dates: start: 20251011
  2. NUPLAZID [Suspect]
     Active Substance: PIMAVANSERIN TARTRATE
     Indication: Parkinson^s disease psychosis
     Dosage: 34 MILLIGRAM, QD
     Route: 048

REACTIONS (8)
  - Dementia [Not Recovered/Not Resolved]
  - Hallucination [Not Recovered/Not Resolved]
  - Oedema peripheral [Not Recovered/Not Resolved]
  - Constipation [Not Recovered/Not Resolved]
  - Insomnia [Not Recovered/Not Resolved]
  - Fatigue [Not Recovered/Not Resolved]
  - Underdose [Not Recovered/Not Resolved]
  - Drug ineffective [Not Recovered/Not Resolved]
